FAERS Safety Report 11397166 (Version 1)
Quarter: 2015Q3

REPORT INFORMATION
  Report Type: Spontaneous
  Country: US (occurrence: US)
  Receive Date: 20150819
  Receipt Date: 20150819
  Transmission Date: 20151125
  Serious: No
  Sender: FDA-Public Use
  Company Number: US-PFIZER INC-2015273907

PATIENT
  Sex: Male
  Weight: 77.78 kg

DRUGS (2)
  1. ATENOLOL. [Concomitant]
     Active Substance: ATENOLOL
     Indication: HEART RATE IRREGULAR
     Dosage: LOW DOSE, 24%, 1 TABLET A DAY
  2. VIAGRA [Suspect]
     Active Substance: SILDENAFIL CITRATE
     Indication: SEXUAL DYSFUNCTION
     Dosage: 50 MG ONE TABLET AS DIRECTED

REACTIONS (5)
  - Drug effect incomplete [Unknown]
  - Drug intolerance [Unknown]
  - Dysphonia [Unknown]
  - Blood testosterone decreased [Unknown]
  - Dry throat [Unknown]
